FAERS Safety Report 9172052 (Version 2)
Quarter: 2013Q2

REPORT INFORMATION
  Report Type: Report from Study
  Country: DE (occurrence: DE)
  Receive Date: 20130319
  Receipt Date: 20130430
  Transmission Date: 20140414
  Serious: Yes (Life-Threatening, Hospitalization)
  Sender: FDA-Public Use
  Company Number: DE-CELGENEUS-062-C5013-13031982

PATIENT
  Age: 75 Year
  Sex: Male
  Weight: 64 kg

DRUGS (9)
  1. CC-5013 [Suspect]
     Indication: PLASMA CELL MYELOMA
     Route: 048
     Dates: start: 20080603
  2. CC-5013 [Suspect]
     Route: 048
     Dates: end: 200904
  3. REVLIMID [Suspect]
     Indication: PLASMA CELL MYELOMA
     Route: 048
     Dates: start: 20110112, end: 20130129
  4. MELPHALAN [Suspect]
     Indication: PLASMA CELL MYELOMA
     Route: 065
     Dates: start: 20080603
  5. MELPHALAN [Suspect]
     Route: 048
     Dates: end: 20090509
  6. PREDNISONE [Suspect]
     Indication: PLASMA CELL MYELOMA
     Route: 065
     Dates: start: 20080603
  7. PREDNISONE [Suspect]
     Route: 065
     Dates: end: 20090509
  8. PLACEBO FOR CC-5013 [Suspect]
     Indication: PLASMA CELL MYELOMA
     Route: 048
  9. DEXAMETHASONE [Concomitant]
     Indication: PLASMA CELL MYELOMA
     Route: 065
     Dates: start: 20110112, end: 20130129

REACTIONS (1)
  - Acute myeloid leukaemia [Not Recovered/Not Resolved]
